FAERS Safety Report 8433957-2 (Version None)
Quarter: 2012Q2

REPORT INFORMATION
  Report Type: 
  Country: None (occurrence: None)
  Receive Date: 20120613
  Receipt Date: 20120605
  Transmission Date: 20120825
  Serious: Yes (Other)
  Sender: FDA-Public Use
  Company Number: TR-MILLENNIUM PHARMACEUTICALS, INC.-2012-04032

PATIENT

DRUGS (5)
  1. DEXAMETHASONE [Suspect]
     Dosage: 40 UNK, UNK
  2. DEXAMETHASONE [Suspect]
     Indication: MULTIPLE MYELOMA
     Dosage: 40 MG, CYCLIC
     Route: 048
  3. VELCADE [Suspect]
     Indication: MULTIPLE MYELOMA
     Dosage: 1.3 MG/M2, CYCLIC
  4. CYCLOPHOSPHAMIDE [Suspect]
     Indication: MULTIPLE MYELOMA
     Dosage: 750 MG/M2, CYCLIC
     Route: 042
  5. LENALIDOMIDE [Suspect]
     Indication: MULTIPLE MYELOMA
     Dosage: 25 MG, CYCLIC

REACTIONS (5)
  - STAPHYLOCOCCAL ABSCESS [None]
  - DISEASE PROGRESSION [None]
  - DEEP VEIN THROMBOSIS [None]
  - OSTEONECROSIS [None]
  - RIB FRACTURE [None]
